FAERS Safety Report 4886813-0 (Version None)
Quarter: 2006Q1

REPORT INFORMATION
  Report Type: 
  Country: None (occurrence: None)
  Receive Date: 20060119
  Receipt Date: 20060119
  Transmission Date: 20060701
  Serious: Yes (Life-Threatening, Other)
  Sender: FDA-Public Use
  Company Number: None

PATIENT
  Age: 66 Year
  Sex: Female
  Weight: 79.8331 kg

DRUGS (2)
  1. ENBREL [Suspect]
     Indication: RHEUMATOID ARTHRITIS
     Dosage: ENBREL 25MG  QW  SQ
     Route: 058
     Dates: start: 20000623, end: 20001113
  2. REMICADE [Suspect]
     Indication: RHEUMATOID ARTHRITIS
     Dosage: REMICADE  400MG  Q6WKS  IV
     Route: 042
     Dates: start: 20010828, end: 20060118

REACTIONS (1)
  - LUNG NEOPLASM MALIGNANT [None]
